FAERS Safety Report 5152044-2 (Version None)
Quarter: 2006Q4

REPORT INFORMATION
  Report Type: 
  Country: None (occurrence: None)
  Receive Date: 20061110
  Receipt Date: 20061110
  Transmission Date: 20070319
  Serious: No
  Sender: FDA-Public Use
  Company Number: None

PATIENT
  Sex: Male

DRUGS (2)
  1. ENBREL [Suspect]
     Indication: PSORIATIC ARTHROPATHY
     Dosage: 50 MG  WEEKLY  SQ
     Route: 058
     Dates: start: 20050701, end: 20051201
  2. HUMIRA [Suspect]
     Dosage: EVERY OTHER WEEK  SQ
     Route: 058
     Dates: start: 20060501, end: 20060501

REACTIONS (2)
  - CARDIAC FAILURE [None]
  - OEDEMA PERIPHERAL [None]
